FAERS Safety Report 5187507-7 (Version None)
Quarter: 2006Q4

REPORT INFORMATION
  Report Type: 
  Country: None (occurrence: None)
  Receive Date: 20061220
  Receipt Date: 20060324
  Transmission Date: 20070319
  Serious: No
  Sender: FDA-Public Use
  Company Number: US-AMGEN-US173846

PATIENT
  Sex: Female

DRUGS (1)
  1. ENBREL [Suspect]
     Indication: RHEUMATOID ARTHRITIS
     Route: 065
     Dates: start: 20050901, end: 20060319

REACTIONS (6)
  - BURNING SENSATION [None]
  - EPISTAXIS [None]
  - HYPERTENSION [None]
  - OEDEMA PERIPHERAL [None]
  - PRURITUS [None]
  - TINNITUS [None]
